FAERS Safety Report 9236283 (Version 2)
Quarter: 2013Q2

REPORT INFORMATION
  Report Type: Spontaneous
  Country: CA (occurrence: CA)
  Receive Date: 20130417
  Receipt Date: 20130426
  Transmission Date: 20140414
  Serious: Yes (Other)
  Sender: FDA-Public Use
  Company Number: CA-AMGEN-CANSP2013023038

PATIENT
  Age: 51 Year
  Sex: Female

DRUGS (5)
  1. ENBREL [Suspect]
     Indication: PSORIATIC ARTHROPATHY
     Dosage: 50 MG, QWK
     Dates: start: 20041031
  2. ZOPICLONE [Concomitant]
     Dosage: UNK
  3. FLUOXETINE [Concomitant]
     Dosage: UNK
  4. WELLBUTRIN [Concomitant]
     Dosage: UNK
  5. SPORINEX [Concomitant]
     Dosage: UNK

REACTIONS (6)
  - Headache [Recovered/Resolved]
  - Vomiting [Recovered/Resolved]
  - Neck pain [Recovered/Resolved]
  - Diarrhoea [Recovered/Resolved]
  - Anxiety [Recovered/Resolved]
  - Blood pressure abnormal [Recovered/Resolved]
